FAERS Safety Report 18133267 (Version 1)
Quarter: 2020Q3

REPORT INFORMATION
  Report Type: Spontaneous
  Country: IE (occurrence: IE)
  Receive Date: 20200811
  Receipt Date: 20200811
  Transmission Date: 20201103
  Serious: Yes (Life-Threatening, Hospitalization, Other)
  Sender: FDA-Public Use
  Company Number: IE-LUPIN PHARMACEUTICALS INC.-2020-04392

PATIENT
  Age: 79 Year
  Sex: Female

DRUGS (3)
  1. LIQUORICE [GLYCYRRHIZA GLABRA] [Suspect]
     Active Substance: GLYCYRRHIZA GLABRA\HERBALS
     Indication: NICOTINE DEPENDENCE
     Dosage: UNK
     Route: 065
  2. POTASSIUM CHLORIDE. [Suspect]
     Active Substance: POTASSIUM CHLORIDE
     Dosage: UNK
     Route: 048
  3. POTASSIUM CHLORIDE. [Suspect]
     Active Substance: POTASSIUM CHLORIDE
     Indication: MINERAL SUPPLEMENTATION
     Dosage: UNK
     Route: 042

REACTIONS (3)
  - Apparent mineralocorticoid excess [Recovered/Resolved]
  - Drug ineffective [Unknown]
  - Pulmonary oedema [Recovered/Resolved]
